FAERS Safety Report 5356798-1 (Version None)
Quarter: 2007Q2

REPORT INFORMATION
  Report Type: 
  Country: None (occurrence: None)
  Receive Date: 20070614
  Receipt Date: 20060803
  Transmission Date: 20071010
  Serious: No
  Sender: FDA-Public Use
  Company Number: US-ASTRAZENECA-2006UW15572

PATIENT
  Age: 71 Year
  Sex: Male
  Weight: 83.9 kg

DRUGS (5)
  1. ATACAND [Suspect]
     Indication: HYPERTENSION
     Route: 048
     Dates: start: 20060714
  2. ASPIRIN [Concomitant]
  3. OMEPRAZOLE [Concomitant]
  4. FLOMAX [Concomitant]
  5. TOPROL-XL [Concomitant]
     Route: 048

REACTIONS (2)
  - ARTHRALGIA [None]
  - PAIN IN EXTREMITY [None]
